FAERS Safety Report 19644460 (Version 1)
Quarter: 2021Q3

REPORT INFORMATION
  Report Type: Report from Study
  Country: US (occurrence: US)
  Receive Date: 20210801
  Receipt Date: 20210801
  Transmission Date: 20211014
  Serious: Yes (Other)
  Sender: FDA-Public Use
  Company Number: US-SUNOVION-2018SUN005143

PATIENT
  Sex: Male

DRUGS (1)
  1. LATUDA [Suspect]
     Active Substance: LURASIDONE HYDROCHLORIDE
     Dosage: 20 MG
     Route: 048

REACTIONS (6)
  - Nervousness [Unknown]
  - Dementia Alzheimer^s type [Unknown]
  - Weight decreased [Unknown]
  - Arthritis [Unknown]
  - Blepharospasm [Unknown]
  - Colostomy [Unknown]
